FAERS Safety Report 9869717 (Version 1)
Quarter: 2014Q1

REPORT INFORMATION
  Report Type: Spontaneous
  Country: US (occurrence: US)
  Receive Date: 20140205
  Receipt Date: 20140205
  Transmission Date: 20141002
  Serious: No
  Sender: FDA-Public Use
  Company Number: US-GLAXOSMITHKLINE-A1006215A

PATIENT
  Age: 76 Year
  Sex: Female

DRUGS (8)
  1. ARIXTRA [Suspect]
     Indication: DEEP VEIN THROMBOSIS
     Dosage: 5MG PER DAY
     Route: 058
     Dates: start: 201107
  2. CYMBALTA [Concomitant]
  3. MORPHINE [Concomitant]
  4. CLONAZEPAM [Concomitant]
  5. OXYCODONE [Concomitant]
  6. TRAMADOL [Concomitant]
  7. METOPROLOL [Concomitant]
  8. LOSARTAN [Concomitant]

REACTIONS (2)
  - Weight increased [Not Recovered/Not Resolved]
  - Bronchitis [Unknown]
